FAERS Safety Report 22619839 (Version 1)
Quarter: 2023Q2

REPORT INFORMATION
  Report Type: Spontaneous
  Country: PE (occurrence: PE)
  Receive Date: 20230620
  Receipt Date: 20230620
  Transmission Date: 20230721
  Serious: Yes (Other)
  Sender: FDA-Public Use
  Company Number: PE-MYLANLABS-2023M1064109

PATIENT
  Age: 27 Year
  Sex: Male

DRUGS (1)
  1. CARDURA XL [Suspect]
     Active Substance: DOXAZOSIN MESYLATE
     Indication: Prostatitis
     Dosage: 1 DOSAGE FORM, QD (ONE TABLET , EVERY 24 HOURS)
     Route: 065

REACTIONS (3)
  - Syncope [Not Recovered/Not Resolved]
  - Suprapubic pain [Not Recovered/Not Resolved]
  - Scrotal pain [Not Recovered/Not Resolved]
